FAERS Safety Report 4508045-8 (Version None)
Quarter: 2004Q4

REPORT INFORMATION
  Report Type: 
  Country: None (occurrence: None)
  Receive Date: 20041123
  Receipt Date: 20031001
  Transmission Date: 20050328
  Serious: No
  Sender: FDA-Public Use
  Company Number: US-GLAXOSMITHKLINE-A0428272A

PATIENT
  Age: 49 Year
  Sex: Female

DRUGS (2)
  1. WELLBUTRIN [Suspect]
     Dosage: 150MG TWICE PER DAY
     Route: 048
     Dates: start: 20030826, end: 20030925
  2. LAMISIL [Concomitant]
     Dosage: 250MG TWICE PER DAY

REACTIONS (2)
  - DYSMENORRHOEA [None]
  - VAGINAL HAEMORRHAGE [None]
